FAERS Safety Report 10175704 (Version 2)
Quarter: 2014Q2

REPORT INFORMATION
  Report Type: Spontaneous
  Country: US (occurrence: US)
  Receive Date: 20140516
  Receipt Date: 20140516
  Transmission Date: 20141212
  Serious: Yes (Other)
  Sender: FDA-Public Use
  Company Number: US-JNJFOC-20120509964

PATIENT
  Sex: Female

DRUGS (3)
  1. LEVAQUIN [Suspect]
     Indication: INFECTION PROPHYLAXIS
     Route: 065
  2. LEVAQUIN [Suspect]
     Indication: CYSTITIS
     Route: 065
  3. LEVAQUIN [Suspect]
     Indication: BACTERIAL INFECTION
     Route: 065

REACTIONS (3)
  - Depression [Unknown]
  - Tendon rupture [Recovering/Resolving]
  - Bone marrow oedema [Unknown]
